FAERS Safety Report 24454583 (Version 2)
Quarter: 2024Q4

REPORT INFORMATION
  Report Type: Spontaneous
  Country: GB (occurrence: GB)
  Receive Date: 20241017
  Receipt Date: 20241018
  Transmission Date: 20250115
  Serious: No
  Sender: ROCHE
  Company Number: None

PATIENT
  Age: 52 Year
  Sex: Female
  Weight: 62.0 kg

DRUGS (1)
  1. RITUXIMAB [Suspect]
     Active Substance: RITUXIMAB
     Indication: Product used for unknown indication
     Route: 065
     Dates: start: 20231205

REACTIONS (1)
  - Pruritus [Recovered/Resolved]

NARRATIVE: CASE EVENT DATE: 20231205
